FAERS Safety Report 7785575-7 (Version None)
Quarter: 2011Q3

REPORT INFORMATION
  Report Type: 
  Country: None (occurrence: None)
  Receive Date: 20110929
  Receipt Date: 20110919
  Transmission Date: 20111222
  Serious: Yes (Hospitalization, Other)
  Sender: FDA-Public Use
  Company Number: US-JNJFOC-20110909680

PATIENT
  Age: 55 Year
  Sex: Female

DRUGS (7)
  1. HYDROCODONE BITARTRATE AND ACETAMINOPHEN [Suspect]
     Indication: BREAKTHROUGH PAIN
     Dosage: 10/325 MG
     Route: 065
  2. FENTANYL [Suspect]
     Route: 062
  3. MORPHINE [Suspect]
     Indication: BREAKTHROUGH PAIN
     Route: 042
  4. DULOXETIME HYDROCHLORIDE [Suspect]
     Indication: BREAKTHROUGH PAIN
     Route: 065
  5. KETAMINE HCL [Suspect]
     Indication: PAIN
     Dosage: EVERY 6 HOURS
     Route: 048
  6. METHADONE HCL [Suspect]
     Indication: PAIN
     Route: 048
  7. FENTANYL [Suspect]
     Indication: PAIN
     Route: 062

REACTIONS (6)
  - MENTAL STATUS CHANGES [None]
  - PAIN [None]
  - STUPOR [None]
  - DELIRIUM [None]
  - CONFUSIONAL STATE [None]
  - AGITATION [None]
